FAERS Safety Report 25252413 (Version 2)
Quarter: 2025Q2

REPORT INFORMATION
  Report Type: Spontaneous
  Country: CH (occurrence: CH)
  Receive Date: 20250429
  Receipt Date: 20250507
  Transmission Date: 20250717
  Serious: Yes (Death, Hospitalization, Other)
  Sender: SANDOZ
  Company Number: CH-002147023-NVSC2022CH305138

PATIENT
  Age: 89 Year
  Sex: Female

DRUGS (7)
  1. FULVESTRANT [Suspect]
     Active Substance: FULVESTRANT
     Indication: Product used for unknown indication
     Route: 065
     Dates: start: 20220704, end: 20240620
  2. FULVESTRANT [Suspect]
     Active Substance: FULVESTRANT
     Indication: Hormone receptor positive HER2 negative breast cancer
     Route: 065
     Dates: start: 20220704, end: 20230801
  3. FULVESTRANT [Suspect]
     Active Substance: FULVESTRANT
     Route: 065
     Dates: start: 20220810
  4. FULVESTRANT [Suspect]
     Active Substance: FULVESTRANT
     Indication: Product used for unknown indication
     Route: 065
  5. RIBOCICLIB [Suspect]
     Active Substance: RIBOCICLIB
     Route: 065
  6. RIBOCICLIB [Suspect]
     Active Substance: RIBOCICLIB
     Indication: Hormone receptor positive HER2 negative breast cancer
     Dosage: 400 MG, QD, (3 WEEKS ON 1 WEEK OFF,  400MG/200MG)
     Route: 048
     Dates: start: 20220704, end: 20220801
  7. RIBOCICLIB [Suspect]
     Active Substance: RIBOCICLIB
     Route: 048
     Dates: start: 20220704, end: 20240710

REACTIONS (15)
  - Death [Fatal]
  - Delirium [Recovered/Resolved]
  - Neutrophil count decreased [Recovered/Resolved]
  - Fatigue [Recovered/Resolved]
  - Memory impairment [Recovered/Resolved]
  - Fall [Recovering/Resolving]
  - Dyspnoea exertional [Not Recovered/Not Resolved]
  - Haematoma [Unknown]
  - Skin exfoliation [Unknown]
  - White blood cell count decreased [Recovered/Resolved]
  - Dizziness [Recovered/Resolved]
  - Dry skin [Unknown]
  - Anaemia [Recovered/Resolved]
  - Rash [Recovered/Resolved]
  - Anaemia [Recovered/Resolved]

NARRATIVE: CASE EVENT DATE: 20220802
